FAERS Safety Report 21052421 (Version 2)
Quarter: 2022Q3

REPORT INFORMATION
  Report Type: Spontaneous
  Country: US (occurrence: US)
  Receive Date: 20220707
  Receipt Date: 20220714
  Transmission Date: 20221027
  Serious: Yes (Other)
  Sender: FDA-Public Use
  Company Number: US-PFIZER INC-PV202200017307

PATIENT
  Sex: Male

DRUGS (1)
  1. SKELAXIN [Suspect]
     Active Substance: METAXALONE
     Dosage: 800 MG QUANTITY FOR 90 DAYS: 270

REACTIONS (3)
  - Injury [Unknown]
  - Arthritis [Unknown]
  - Spinal disorder [Unknown]
